FAERS Safety Report 25735155 (Version 2)
Quarter: 2025Q3

REPORT INFORMATION
  Report Type: Report from Study
  Country: US (occurrence: US)
  Receive Date: 20250828
  Receipt Date: 20250922
  Transmission Date: 20251020
  Serious: Yes (Hospitalization, Other)
  Sender: ALEXION PHARMACEUTICALS
  Company Number: US-AstraZeneca-CH-00936435A

PATIENT
  Sex: Male

DRUGS (2)
  1. SOLIRIS [Suspect]
     Active Substance: ECULIZUMAB
     Route: 065
  2. ULTOMIRIS [Suspect]
     Active Substance: RAVULIZUMAB-CWVZ
     Route: 065

REACTIONS (11)
  - Paralysis [Unknown]
  - Dyspnoea [Unknown]
  - Oral infection [Unknown]
  - Muscular weakness [Unknown]
  - Mastication disorder [Not Recovered/Not Resolved]
  - Dysphagia [Not Recovered/Not Resolved]
  - Fatigue [Unknown]
  - Speech disorder [Not Recovered/Not Resolved]
  - Anal incontinence [Unknown]
  - General physical health deterioration [Unknown]
  - Insomnia [Unknown]
